FAERS Safety Report 22612378 (Version 1)
Quarter: 2023Q2

REPORT INFORMATION
  Report Type: Spontaneous
  Country: JP (occurrence: JP)
  Receive Date: 20230617
  Receipt Date: 20230617
  Transmission Date: 20230721
  Serious: Yes (Hospitalization, Other)
  Sender: FDA-Public Use
  Company Number: JP-COSETTE-CP2023JP000117

PATIENT
  Age: 74 Year
  Sex: Female

DRUGS (6)
  1. EFFIENT [Suspect]
     Active Substance: PRASUGREL HYDROCHLORIDE
     Indication: Atrial fibrillation
     Route: 065
  2. EFFIENT [Suspect]
     Active Substance: PRASUGREL HYDROCHLORIDE
     Indication: Atrial fibrillation
  3. EPINEPHRINE [Suspect]
     Active Substance: EPINEPHRINE
     Indication: Cardiac arrest
     Route: 065
  4. APIXABAN [Suspect]
     Active Substance: APIXABAN
     Indication: Atrial fibrillation
     Route: 065
  5. APIXABAN [Suspect]
     Active Substance: APIXABAN
     Indication: Atrial fibrillation
  6. HEPARIN [Suspect]
     Active Substance: HEPARIN SODIUM
     Indication: Product used for unknown indication
     Route: 065

REACTIONS (4)
  - Coagulopathy [Recovering/Resolving]
  - Haemorrhage [Recovering/Resolving]
  - Rib fracture [Unknown]
  - Splenic injury [Unknown]
